FAERS Safety Report 9432257 (Version 3)
Quarter: 2015Q2

REPORT INFORMATION
  Report Type: Report from Study
  Country: AU (occurrence: AU)
  Receive Date: 20130731
  Receipt Date: 20150407
  Transmission Date: 20150821
  Serious: Yes (Other)
  Sender: FDA-Public Use
  Company Number: PHHY2013AU080387

PATIENT
  Sex: Male

DRUGS (1)
  1. STI571 [Suspect]
     Active Substance: IMATINIB MESYLATE
     Indication: GRAFT VERSUS HOST DISEASE
     Dosage: 400 MG, QD
     Route: 048

REACTIONS (4)
  - Mobility decreased [Unknown]
  - Blindness [Unknown]
  - Dry eye [Unknown]
  - Gait disturbance [Unknown]
